FAERS Safety Report 5466832-6 (Version None)
Quarter: 2007Q3

REPORT INFORMATION
  Report Type: 
  Country: None (occurrence: None)
  Receive Date: 20070920
  Receipt Date: 20070907
  Transmission Date: 20080115
  Serious: Yes (Other)
  Sender: FDA-Public Use
  Company Number: B0487288A

PATIENT
  Age: 37 Year
  Sex: Female

DRUGS (5)
  1. PYRIMETHAMINE TAB [Suspect]
     Indication: CEREBRAL TOXOPLASMOSIS
     Dosage: SEE DOSAGE TEXT
  2. ANTIRETROVIRAL MEDICATION [Concomitant]
  3. CO-TRIMOXAZOLE [Concomitant]
  4. SULPHADIAZINE [Concomitant]
  5. PROPRANOLOL HYDROCHLORIDE [Concomitant]

REACTIONS (3)
  - ANAEMIA [None]
  - HAEMATOTOXICITY [None]
  - LEUKOPENIA [None]
